FAERS Safety Report 4639210-7 (Version None)
Quarter: 2005Q2

REPORT INFORMATION
  Report Type: 
  Country: None (occurrence: None)
  Receive Date: 20050418
  Receipt Date: 20050401
  Transmission Date: 20051028
  Serious: Yes (Life-Threatening, Hospitalization, Other)
  Sender: FDA-Public Use
  Company Number: MEDI-0003142

PATIENT
  Age: 4 Month
  Sex: Male
  Weight: 6.495 kg

DRUGS (2)
  1. SYNAGIS [Suspect]
     Indication: ANTIVIRAL PROPHYLAXIS
     Dosage: SEE IMAGE
     Route: 042
     Dates: start: 20041122, end: 20050318
  2. SYNAGIS [Suspect]
     Indication: ANTIVIRAL PROPHYLAXIS
     Dosage: SEE IMAGE
     Route: 042
     Dates: start: 20041122

REACTIONS (2)
  - MENINGITIS [None]
  - STREPTOCOCCAL SEPSIS [None]
